FAERS Safety Report 5881975-0 (Version None)
Quarter: 2008Q3

REPORT INFORMATION
  Report Type: 
  Country: None (occurrence: None)
  Receive Date: 20080912
  Receipt Date: 20080718
  Transmission Date: 20090109
  Serious: No
  Sender: FDA-Public Use
  Company Number: US-ABBOTT-08P-163-0464272-00

PATIENT
  Sex: Female
  Weight: 66.284 kg

DRUGS (14)
  1. HUMIRA [Suspect]
     Indication: CROHN'S DISEASE
     Route: 058
     Dates: start: 20080506
  2. HUMIRA [Suspect]
     Indication: LIGAMENT SPRAIN
  3. HUMIRA [Suspect]
     Indication: ARTHRITIS
  4. MESALAMINE [Concomitant]
     Indication: CROHN'S DISEASE
  5. VIFAXIN [Concomitant]
     Indication: DRUG USE FOR UNKNOWN INDICATION
  6. ROBANAW FORTE [Concomitant]
     Indication: DRUG USE FOR UNKNOWN INDICATION
  7. GLUTAMIC ACID [Concomitant]
     Indication: DRUG USE FOR UNKNOWN INDICATION
     Dosage: DAILY
  8. CALCIUM [Concomitant]
     Indication: MINERAL SUPPLEMENTATION
     Route: 048
  9. VIGRAN [Concomitant]
     Indication: VITAMIN SUPPLEMENTATION
     Dosage: DAILY
     Route: 048
  10. ESCITALOPRAM OXALATE [Concomitant]
     Indication: DRUG USE FOR UNKNOWN INDICATION
     Dosage: DAILY
     Route: 048
  11. CLONAZEPAM [Concomitant]
     Indication: DRUG USE FOR UNKNOWN INDICATION
     Dosage: DAILY
     Route: 048
  12. DEXTROPROPOXYPHENE HYDROCHLORIDE [Concomitant]
     Indication: PAIN
     Dosage: 4-6 TABLETS DAILY
     Route: 048
  13. LEVONORGESTREL [Concomitant]
     Indication: DRUG USE FOR UNKNOWN INDICATION
     Dosage: DAILY
  14. LACTOBACILLUS ACIDOPHILUS [Concomitant]
     Indication: CROHN'S DISEASE
     Dosage: 2 BILLION CFU PER DAY
     Route: 048

REACTIONS (4)
  - ALOPECIA [None]
  - CONTUSION [None]
  - HAEMOGLOBIN INCREASED [None]
  - OROPHARYNGEAL PAIN [None]
